FAERS Safety Report 18589821 (Version 1)
Quarter: 2020Q4

REPORT INFORMATION
  Report Type: Spontaneous
  Country: US (occurrence: US)
  Receive Date: 20201208
  Receipt Date: 20201208
  Transmission Date: 20210114
  Serious: No
  Sender: FDA-Public Use
  Company Number: US-BIOVITRUM-2020US7240

PATIENT
  Sex: Male

DRUGS (3)
  1. SYNAGIS [Suspect]
     Active Substance: PALIVIZUMAB
     Indication: CONGENITAL PNEUMONIA
  2. SYNAGIS [Suspect]
     Active Substance: PALIVIZUMAB
     Indication: PREMATURE BABY
  3. SYNAGIS [Suspect]
     Active Substance: PALIVIZUMAB
     Indication: RESPIRATORY DISORDER
     Dosage: 100MG/1ML VL LIQUID
     Route: 030

REACTIONS (2)
  - Off label use [Unknown]
  - Weight decreased [Unknown]
